FAERS Safety Report 8204931-6 (Version None)
Quarter: 2012Q1

REPORT INFORMATION
  Report Type: 
  Country: None (occurrence: None)
  Receive Date: 20120313
  Receipt Date: 20120312
  Transmission Date: 20120608
  Serious: No
  Sender: FDA-Public Use
  Company Number: DE-PFIZER INC-K201100498

PATIENT
  Sex: Female

DRUGS (23)
  1. BONIVA [Concomitant]
     Dosage: UNK
  2. CALCIUM [Concomitant]
     Dosage: UNK
  3. DIPHENHYDRAMINE [Concomitant]
     Dosage: UNK
  4. BUTALBITAL AND CAFFEINE AND PARACETAMOL [Concomitant]
     Dosage: UNK
  5. VITAMIN E [Concomitant]
     Dosage: 400 GY, UNK
  6. ACIDOPHILUS [Concomitant]
     Dosage: UNK
  7. SKELAXIN [Suspect]
     Dosage: UNK
     Route: 048
  8. XOPENEX [Concomitant]
     Dosage: UNK
  9. ASTELIN [Concomitant]
     Dosage: UNK
  10. FLEXERIL [Concomitant]
     Dosage: UNK
  11. PATANOL [Concomitant]
     Dosage: UNK
  12. ASCORBIC ACID [Concomitant]
     Dosage: 1000 MG, UNK
  13. IRON [Concomitant]
     Dosage: UNK
  14. MISOPROSTOL [Concomitant]
     Dosage: UNK
  15. NAPROXEN SODIUM [Concomitant]
     Dosage: UNK
  16. ACIPHEX [Concomitant]
     Dosage: UNK
  17. ALPHA LIPOIC ACID [Concomitant]
     Dosage: UNK
  18. VIOXX [Suspect]
     Dosage: UNK
  19. THEOPHYLLINE [Concomitant]
     Dosage: UNK
  20. MAGNESIUM [Concomitant]
     Dosage: UNK
  21. QVAR 40 [Concomitant]
     Dosage: UNK
  22. DUONEB [Concomitant]
     Dosage: UNK
  23. VITAMIN D [Concomitant]
     Dosage: 2000 IU, UNK

REACTIONS (3)
  - TINNITUS [None]
  - ABDOMINAL PAIN UPPER [None]
  - INSOMNIA [None]
